FAERS Safety Report 6929425-7 (Version None)
Quarter: 2010Q3

REPORT INFORMATION
  Report Type: 
  Country: None (occurrence: None)
  Receive Date: 20100813
  Receipt Date: 20100728
  Transmission Date: 20110219
  Serious: Yes (Hospitalization)
  Sender: FDA-Public Use
  Company Number: AMI0021562

PATIENT
  Age: 56 Year

DRUGS (8)
  1. TIMOPTIC [Suspect]
     Indication: GLAUCOMA
     Dosage: BID - 046
     Dates: start: 20100415, end: 20100429
  2. TIMOPTIC [Suspect]
     Indication: GLAUCOMA
     Dosage: BID - 046
     Dates: start: 20100501, end: 20100706
  3. TAFLUPROST 0.0015% (MK-2452) [Suspect]
     Indication: GLAUCOMA
     Dosage: QD-046
     Dates: start: 20100415, end: 20100429
  4. TAFLUPROST 0.0015% (MK-2452) [Suspect]
     Indication: GLAUCOMA
     Dosage: QD-046
     Dates: start: 20100501, end: 20100706
  5. ATENOLOL [Concomitant]
  6. HYDROCODONE BITARTRATE [Concomitant]
  7. LISINOPRIL AND HYDROCHLOROTHIAZIDE [Concomitant]
  8. SIMVASTATIN [Concomitant]

REACTIONS (2)
  - FALL [None]
  - JOINT DISLOCATION [None]
